FAERS Safety Report 9795477 (Version 2)
Quarter: 2014Q1

REPORT INFORMATION
  Report Type: Spontaneous
  Country: US (occurrence: US)
  Receive Date: 20140103
  Receipt Date: 20140103
  Transmission Date: 20141002
  Serious: Yes (Other)
  Sender: FDA-Public Use
  Company Number: US-DENDREON CORPORATION-2013PROUSA03360

PATIENT
  Age: 85 Year
  Sex: Male

DRUGS (2)
  1. PROVENGE [Suspect]
     Indication: PROSTATE CANCER METASTATIC
     Dosage: 250 ML, SINGLE
     Route: 042
     Dates: start: 20131118, end: 20131118
  2. PROVENGE [Suspect]
     Dosage: 250 ML, SINGLE
     Route: 042
     Dates: start: 20131220, end: 20131220

REACTIONS (7)
  - Hospice care [Unknown]
  - Tachycardia [Unknown]
  - Local swelling [Unknown]
  - Lymphoedema [Unknown]
  - Erythema [Unknown]
  - Body temperature increased [Unknown]
  - Malaise [Not Recovered/Not Resolved]
